FAERS Safety Report 6153931 (Version 14)
Quarter: 2014Q1

REPORT INFORMATION
  Report Type: Spontaneous
  Country: US (occurrence: US)
  Receive Date: 20061026
  Receipt Date: 20140328
  Transmission Date: 20141002
  Serious: Yes (Death, Hospitalization, Other)
  Sender: FDA-Public Use
  Company Number: US-JNJFOC-20061003682

PATIENT
  Age: 70 Year
  Sex: Male
  Weight: 115.7 kg

DRUGS (10)
  1. REMICADE [Suspect]
     Indication: RHEUMATOID ARTHRITIS
     Dosage: 3 DOSE INDUCTION FOLLOWED BY MAINT. Q 8 WEEKS, 300 MG ON 29-JUN-2006, TOTAL 27 INFUSIONS
     Route: 042
     Dates: start: 200110, end: 20060629
  2. CYCLOPHOSPHAMIDE [Suspect]
     Indication: T-CELL LYMPHOMA
     Dates: start: 2006
  3. ADRIAMYCIN [Suspect]
     Indication: T-CELL LYMPHOMA
     Dates: start: 20060910
  4. VINCRISTINE [Suspect]
     Indication: T-CELL LYMPHOMA
     Dates: start: 20060910
  5. PREDNISONE [Suspect]
     Indication: T-CELL LYMPHOMA
     Dates: start: 2006
  6. AZATHIOPRINE [Suspect]
     Indication: RHEUMATOID ARTHRITIS
     Route: 065
     Dates: start: 20010906, end: 20030110
  7. LEFLUNOMIDE [Suspect]
     Indication: RHEUMATOID ARTHRITIS
     Route: 065
     Dates: start: 199905, end: 200104
  8. METHOTREXATE [Suspect]
     Indication: RHEUMATOID ARTHRITIS
     Route: 065
     Dates: start: 1994, end: 1999
  9. AZULFADINE [Concomitant]
     Dates: start: 200105, end: 200608
  10. LISINOPRIL [Concomitant]
     Dates: start: 2006

REACTIONS (9)
  - T-cell lymphoma [Unknown]
  - Disseminated intravascular coagulation [Fatal]
  - Sepsis [Fatal]
  - Multi-organ failure [Fatal]
  - Acute respiratory distress syndrome [Fatal]
  - Pancytopenia [Unknown]
  - Gastrointestinal haemorrhage [Unknown]
  - Atrial fibrillation [Unknown]
  - Cholecystitis acute [Unknown]
